FAERS Safety Report 5220705-2 (Version None)
Quarter: 2007Q1

REPORT INFORMATION
  Report Type: 
  Country: None (occurrence: None)
  Receive Date: 20070125
  Receipt Date: 20070125
  Transmission Date: 20070707
  Serious: Yes (Hospitalization)
  Sender: FDA-Public Use
  Company Number: None

PATIENT
  Sex: Male
  Weight: 76.2043 kg

DRUGS (9)
  1. BACTRIM DS [Suspect]
     Indication: ANTI-INFECTIVE THERAPY
     Dosage: 1 PO BID
     Route: 048
  2. AMIODARONE HCL [Concomitant]
  3. TOPROL-XL [Concomitant]
  4. ALTACE [Concomitant]
  5. SYNTHROID [Concomitant]
  6. NEXIUM [Concomitant]
  7. VYTORIN [Concomitant]
  8. ASPIRIN [Concomitant]
  9. BACTROBAN [Concomitant]

REACTIONS (3)
  - MASTICATION DISORDER [None]
  - MUSCLE SPASMS [None]
  - ORAL PAIN [None]
